FAERS Safety Report 25156164 (Version 1)
Quarter: 2025Q2

REPORT INFORMATION
  Report Type: Spontaneous
  Country: GB (occurrence: GB)
  Receive Date: 20250403
  Receipt Date: 20250403
  Transmission Date: 20250717
  Serious: Yes (Other)
  Sender: SANDOZ
  Company Number: None

PATIENT

DRUGS (1)
  1. RISPERIDONE [Suspect]
     Active Substance: RISPERIDONE
     Indication: Product used for unknown indication
     Dosage: 2 MG, BID
     Route: 065

REACTIONS (5)
  - Restlessness [Not Recovered/Not Resolved]
  - Dysarthria [Recovering/Resolving]
  - Somnolence [Recovering/Resolving]
  - Joint stiffness [Recovering/Resolving]
  - Dysphagia [Not Recovered/Not Resolved]
